FAERS Safety Report 9694228 (Version 1)
Quarter: 2013Q4

REPORT INFORMATION
  Report Type: Spontaneous
  Country: US (occurrence: US)
  Receive Date: 20131118
  Receipt Date: 20131118
  Transmission Date: 20140711
  Serious: Yes (Other)
  Sender: FDA-Public Use
  Company Number: US-PFIZER INC-2013327487

PATIENT
  Age: 49 Year
  Sex: Male
  Weight: 88.44 kg

DRUGS (3)
  1. LYRICA [Suspect]
     Indication: POLYNEUROPATHY IN MALIGNANT DISEASE
     Dosage: 75 MG, 2X/DAY
     Dates: start: 201311
  2. OXYCONTIN [Suspect]
     Indication: POLYNEUROPATHY IN MALIGNANT DISEASE
     Dosage: 10 MG, 3X/DAY
     Dates: start: 2010
  3. PERCOCET [Concomitant]
     Dosage: 5 MG, DAILY

REACTIONS (3)
  - Off label use [Unknown]
  - Gait disturbance [Unknown]
  - Pain [Unknown]
